FAERS Safety Report 21132668 (Version 2)
Quarter: 2022Q3

REPORT INFORMATION
  Report Type: Spontaneous
  Country: US (occurrence: US)
  Receive Date: 20220726
  Receipt Date: 20220926
  Transmission Date: 20221027
  Serious: No
  Sender: FDA-Public Use
  Company Number: US-PFIZER INC-202200825356

PATIENT
  Age: 50 Year
  Sex: Male

DRUGS (1)
  1. XELJANZ XR [Suspect]
     Active Substance: TOFACITINIB CITRATE
     Indication: Colitis ulcerative
     Dosage: 22 MG, 1X/DAY
     Route: 048
     Dates: start: 20220401

REACTIONS (6)
  - Product dose omission issue [Unknown]
  - Intentional product misuse [Unknown]
  - Gastrointestinal sounds abnormal [Unknown]
  - Flatulence [Unknown]
  - Bowel movement irregularity [Unknown]
  - Sleep disorder [Unknown]

NARRATIVE: CASE EVENT DATE: 20220101
